FAERS Safety Report 15547775 (Version 5)
Quarter: 2019Q1

REPORT INFORMATION
  Report Type: Spontaneous
  Country: NL (occurrence: NL)
  Receive Date: 20181024
  Receipt Date: 20190226
  Transmission Date: 20190417
  Serious: Yes (Other)
  Sender: FDA-Public Use
  Company Number: NL-009507513-1810NLD008359

PATIENT
  Age: 66 Year
  Sex: Female

DRUGS (3)
  1. BENSERAZIDE HYDROCHLORIDE (+) LEVODOPA [Concomitant]
     Active Substance: BENSERAZIDE\LEVODOPA
     Indication: PARKINSON^S DISEASE
     Dosage: 125 MILLIGRAM, PRN (AS NECESSARY, DAILY)
  2. ROPINIROLE. [Concomitant]
     Active Substance: ROPINIROLE
     Indication: PARKINSON^S DISEASE
     Dosage: AS NECESSARY
  3. CARBIDOPA (+) LEVODOPA [Suspect]
     Active Substance: CARBIDOPA\LEVODOPA
     Indication: PARKINSON^S DISEASE
     Dosage: 1000 MG (AS NECESSARY, DAILY)
     Route: 048

REACTIONS (2)
  - Peripheral sensory neuropathy [Recovering/Resolving]
  - Vitamin B6 deficiency [Recovering/Resolving]
